FAERS Safety Report 25526259 (Version 2)
Quarter: 2025Q3

REPORT INFORMATION
  Report Type: Spontaneous
  Country: JP (occurrence: JP)
  Receive Date: 20250707
  Receipt Date: 20250922
  Transmission Date: 20251020
  Serious: Yes (Other)
  Sender: PFIZER
  Company Number: JP-PFIZER INC-PV202500063869

PATIENT
  Age: 45 Year
  Sex: Female

DRUGS (1)
  1. LORBRENA [Suspect]
     Active Substance: LORLATINIB
     Indication: Lung neoplasm malignant
     Route: 048

REACTIONS (8)
  - Cardiac dysfunction [Unknown]
  - Lung neoplasm malignant [Unknown]
  - Malignant neoplasm progression [Unknown]
  - Metastases to oesophagus [Unknown]
  - Metastases to heart [Unknown]
  - Irritability [Unknown]
  - Insomnia [Recovered/Resolved]
  - Oedema peripheral [Recovering/Resolving]
